FAERS Safety Report 7262210-8 (Version None)
Quarter: 2011Q1

REPORT INFORMATION
  Report Type: 
  Country: None (occurrence: None)
  Receive Date: 20110130
  Receipt Date: 20101112
  Transmission Date: 20110831
  Serious: No
  Sender: FDA-Public Use
  Company Number: US-ABBOTT-10P-163-0685437-00

PATIENT
  Age: 40 Year
  Sex: Male

DRUGS (3)
  1. CYMBALTA [Concomitant]
     Indication: DEPRESSION
  2. ENALAPRIL MALEATE [Concomitant]
     Indication: HYPERTENSION
  3. HUMIRA [Suspect]
     Indication: ANKYLOSING SPONDYLITIS
     Dates: start: 20100825

REACTIONS (2)
  - PRURITUS [None]
  - DRY SKIN [None]
